FAERS Safety Report 5492800-4 (Version None)
Quarter: 2007Q4

REPORT INFORMATION
  Report Type: 
  Country: None (occurrence: None)
  Receive Date: 20071023
  Receipt Date: 20071012
  Transmission Date: 20080405
  Serious: Yes (Hospitalization, Congenital Anomaly)
  Sender: FDA-Public Use
  Company Number: JP-ELI_LILLY_AND_COMPANY-JP200608004683

PATIENT
  Sex: Female
  Weight: 3.13 kg

DRUGS (1)
  1. ZYPREXA [Suspect]
     Route: 064

REACTIONS (2)
  - AUTOSOMAL CHROMOSOME ANOMALY [None]
  - DRUG EXPOSURE DURING PREGNANCY [None]
